FAERS Safety Report 7041402-7 (Version None)
Quarter: 2010Q4

REPORT INFORMATION
  Report Type: 
  Country: None (occurrence: None)
  Receive Date: 20101008
  Receipt Date: 20101001
  Transmission Date: 20110411
  Serious: Yes (Hospitalization, Other)
  Sender: FDA-Public Use
  Company Number: JPI-P-012461

PATIENT
  Age: 56 Year
  Sex: Female
  Weight: 70.3075 kg

DRUGS (7)
  1. XYREM [Suspect]
     Indication: INSOMNIA
     Dosage: 7.5 GM (3.75 GM, 2 IN 1 D), ORAL
     Route: 048
     Dates: start: 20061212, end: 20091031
  2. XYREM [Suspect]
     Indication: SLEEP DISORDER
     Dosage: 7.5 GM (3.75 GM, 2 IN 1 D), ORAL
     Route: 048
     Dates: start: 20061212, end: 20091031
  3. VERAPAMIL [Concomitant]
  4. TOPIRAMATE [Concomitant]
  5. LEVOTHYROXINE [Concomitant]
  6. ACETYLSALICYLIC ACID [Concomitant]
  7. BUPROPION HCL [Concomitant]

REACTIONS (8)
  - BACK PAIN [None]
  - CONFUSIONAL STATE [None]
  - DISORIENTATION [None]
  - FALL [None]
  - MIDDLE INSOMNIA [None]
  - PERIORBITAL HAEMATOMA [None]
  - PNEUMOTHORAX [None]
  - RIB FRACTURE [None]
